FAERS Safety Report 5154407-8 (Version None)
Quarter: 2006Q4

REPORT INFORMATION
  Report Type: 
  Country: None (occurrence: None)
  Receive Date: 20061114
  Receipt Date: 20061031
  Transmission Date: 20070319
  Serious: Yes (Other)
  Sender: FDA-Public Use
  Company Number: 229774

PATIENT
  Sex: Female

DRUGS (5)
  1. XOLAIR [Suspect]
     Indication: ASTHMA
     Dosage: 1/MONTH, SUBCUTANEOUS
     Route: 058
     Dates: start: 20060301
  2. BUDESONIDE [Concomitant]
  3. FORMOTEROL (FORMOTEROL FUMARATE) [Concomitant]
  4. SINGULAIR [Concomitant]
  5. PREDNISOLONE [Concomitant]

REACTIONS (2)
  - ASTHMA [None]
  - CONDITION AGGRAVATED [None]
